FAERS Safety Report 9345951 (Version 1)
Quarter: 2013Q2

REPORT INFORMATION
  Report Type: Spontaneous
  Country: US (occurrence: US)
  Receive Date: 20130613
  Receipt Date: 20130613
  Transmission Date: 20140414
  Serious: No
  Sender: FDA-Public Use
  Company Number: US-BAYER-2013-068643

PATIENT
  Age: 22 Year
  Sex: Female
  Weight: 68 kg

DRUGS (4)
  1. ALEVE CAPLET [Suspect]
     Route: 048
  2. NAPROXEN SODIUM [Concomitant]
     Dosage: 500 MG, UNK
  3. NAPROXEN SODIUM [Concomitant]
     Dosage: 550 MG, UNK
  4. MONONESSA-28 [Concomitant]

REACTIONS (6)
  - Local swelling [Not Recovered/Not Resolved]
  - Hypoaesthesia [Not Recovered/Not Resolved]
  - Dyspnoea [Not Recovered/Not Resolved]
  - Inflammation [Not Recovered/Not Resolved]
  - Inflammation [Not Recovered/Not Resolved]
  - Blood pressure increased [Not Recovered/Not Resolved]
